FAERS Safety Report 17827132 (Version 2)
Quarter: 2021Q2

REPORT INFORMATION
  Report Type: Spontaneous
  Country: DE (occurrence: DE)
  Receive Date: 20200527
  Receipt Date: 20210607
  Transmission Date: 20210717
  Serious: Yes (Hospitalization, Disabling, Other)
  Sender: FDA-Public Use
  Company Number: DE-AUROBINDO-AUR-APL-2020-025879

PATIENT
  Sex: Female

DRUGS (3)
  1. KISQALI [Suspect]
     Active Substance: RIBOCICLIB
     Indication: BREAST CANCER METASTATIC
     Dosage: 600 MILLIGRAM, ONCE A DAY (D1?D21?D28)
     Route: 048
     Dates: start: 20180119, end: 20181231
  2. KISQALI [Suspect]
     Active Substance: RIBOCICLIB
     Dosage: 600 MILLIGRAM, ONCE A DAY (D1?D21?D28)
     Route: 048
     Dates: start: 20190122, end: 20200525
  3. LETROZOLE. [Suspect]
     Active Substance: LETROZOLE
     Indication: PRODUCT USED FOR UNKNOWN INDICATION
     Dosage: 2.5 MILLIGRAM, ONCE A DAY
     Route: 048
     Dates: start: 20180119

REACTIONS (6)
  - Coronary artery disease [Recovered/Resolved with Sequelae]
  - Skin ulcer [Recovered/Resolved]
  - Erysipelas [Recovered/Resolved]
  - General physical health deterioration [Not Recovered/Not Resolved]
  - Cellulitis [Recovered/Resolved]
  - Intermittent claudication [Recovered/Resolved with Sequelae]

NARRATIVE: CASE EVENT DATE: 20200127
